FAERS Safety Report 22329824 (Version 3)
Quarter: 2023Q2

REPORT INFORMATION
  Report Type: Spontaneous
  Country: US (occurrence: US)
  Receive Date: 20230517
  Receipt Date: 20230613
  Transmission Date: 20230722
  Serious: Yes (Hospitalization)
  Sender: FDA-Public Use
  Company Number: US-BIOGEN-2023BI01205551

PATIENT
  Age: 16 Year
  Sex: Female
  Weight: 44 kg

DRUGS (10)
  1. SPINRAZA [Suspect]
     Active Substance: NUSINERSEN
     Indication: Spinal muscular atrophy
     Route: 050
     Dates: start: 20170419, end: 202211
  2. SPINRAZA [Suspect]
     Active Substance: NUSINERSEN
     Dosage: MAINTENANCE DOSES: ONCE EVERY 4 MONTHS
     Route: 050
  3. SPINRAZA [Suspect]
     Active Substance: NUSINERSEN
     Dosage: FIRST 3 LOADING DOSES EVERY 14 DAYS
     Route: 050
     Dates: start: 20230524
  4. SPINRAZA [Suspect]
     Active Substance: NUSINERSEN
     Dosage: FIRST 3 LOADING DOSES EVERY 14 DAYS
     Route: 050
  5. SPINRAZA [Suspect]
     Active Substance: NUSINERSEN
     Dosage: FIRST 3 LOADING DOSES EVERY 14 DAYS
     Route: 050
  6. SPINRAZA [Suspect]
     Active Substance: NUSINERSEN
     Dosage: FIRST 3 LOADING DOSES EVERY 14 DAYS
     Route: 050
  7. EVRYSDI [Suspect]
     Active Substance: RISDIPLAM
     Indication: Product used for unknown indication
     Route: 050
     Dates: start: 20220922
  8. CALCIUM [Concomitant]
     Active Substance: CALCIUM
     Indication: Product used for unknown indication
     Route: 050
     Dates: start: 20210930
  9. MINERALS\VITAMINS [Concomitant]
     Active Substance: MINERALS\VITAMINS
     Indication: Product used for unknown indication
     Route: 050
     Dates: start: 20210930
  10. VITAMIN E [Concomitant]
     Active Substance: .ALPHA.-TOCOPHEROL
     Indication: Product used for unknown indication
     Route: 050
     Dates: start: 20210930

REACTIONS (4)
  - Sepsis [Unknown]
  - Dehydration [Unknown]
  - Constipation [Unknown]
  - Treatment noncompliance [Unknown]

NARRATIVE: CASE EVENT DATE: 20220922
